FAERS Safety Report 9148606 (Version 1)
Quarter: 2013Q1

REPORT INFORMATION
  Report Type: Spontaneous
  Country: US (occurrence: None)
  Receive Date: 20130222
  Receipt Date: 20130222
  Transmission Date: 20140127
  Serious: Yes (Death)
  Sender: FDA-Public Use
  Company Number: 2013-00402

PATIENT
  Age: 53 Year
  Sex: Male

DRUGS (5)
  1. SIMVASTATIN [Suspect]
     Indication: PRODUCT USED FOR UNKNOWN INDICATION
  2. LISINOPRIL (UNKNOWN (LISINOPRIL) [Suspect]
     Indication: PRODUCT USED FOR UNKNOWN INDICATION
  3. METFORMIN (UNKNOWN) [Suspect]
     Indication: PRODUCT USED FOR UNKNOWN INDICATION
  4. CARVEDILOL (UNKNOWN) [Suspect]
     Indication: PRODUCT USED FOR UNKNOWN INDICATION
  5. SALICYLATE (UNKNOWN) [Suspect]
     Indication: PRODUCT USED FOR UNKNOWN INDICATION

REACTIONS (1)
  - Completed suicide [None]
